FAERS Safety Report 20895336 (Version 2)
Quarter: 2022Q2

REPORT INFORMATION
  Report Type: Report from Study
  Country: US (occurrence: None)
  Receive Date: 20220531
  Receipt Date: 20220601
  Transmission Date: 20220721
  Serious: Yes (Hospitalization)
  Sender: FDA-Public Use
  Company Number: US-Eisai Medical Research-EC-2022-114589

PATIENT
  Age: 66 Year
  Sex: Male
  Weight: 103.7 kg

DRUGS (10)
  1. LENVATINIB [Suspect]
     Active Substance: LENVATINIB
     Indication: Hepatocellular carcinoma
     Dosage: STARTING DOSE AT 12MG, FLUCTUATED DOSAGE
     Route: 048
     Dates: start: 20211119, end: 20220413
  2. LENVATINIB [Suspect]
     Active Substance: LENVATINIB
     Route: 048
     Dates: start: 20220414, end: 20220524
  3. PEMBROLIZUMAB [Suspect]
     Active Substance: PEMBROLIZUMAB
     Indication: Hepatocellular carcinoma
     Dosage: QUAVONLIMAB (MK-1308) 25MG + PEMBROLIZUMAB (MK-3475) 400MG (MK-1308A)
     Route: 042
     Dates: start: 20211119, end: 20220208
  4. PEMBROLIZUMAB [Suspect]
     Active Substance: PEMBROLIZUMAB
     Dosage: QUAVONLIMAB (MK-1308) 25MG + PEMBROLIZUMAB (MK-3475) 400MG (MK-1308A)
     Route: 042
     Dates: start: 20220322, end: 20220322
  5. PEMBROLIZUMAB [Suspect]
     Active Substance: PEMBROLIZUMAB
     Dosage: QUAVONLIMAB (MK-1308) 25MG + PEMBROLIZUMAB (MK-3475) 400MG (MK-1308A)
     Route: 042
     Dates: start: 20220505, end: 20220505
  6. ADVIL [Concomitant]
     Active Substance: IBUPROFEN
     Dates: start: 20220115
  7. VOLTAREN [Concomitant]
     Active Substance: DICLOFENAC SODIUM
     Dates: start: 20220302
  8. QUAVONLIMAB [Suspect]
     Active Substance: QUAVONLIMAB
  9. QUAVONLIMAB [Suspect]
     Active Substance: QUAVONLIMAB
  10. QUAVONLIMAB [Suspect]
     Active Substance: QUAVONLIMAB

REACTIONS (2)
  - Biliary obstruction [Not Recovered/Not Resolved]
  - Head injury [Recovered/Resolved]

NARRATIVE: CASE EVENT DATE: 20220420
